FAERS Safety Report 8621305-4 (Version None)
Quarter: 2012Q3

REPORT INFORMATION
  Report Type: 
  Country: None (occurrence: None)
  Receive Date: 20120824
  Receipt Date: 20120817
  Transmission Date: 20120928
  Serious: Yes (Hospitalization)
  Sender: FDA-Public Use
  Company Number: FI-ABBOTT-12P-055-0969443-00

PATIENT
  Age: 60 Year
  Sex: Male

DRUGS (12)
  1. HUMIRA [Suspect]
     Indication: ANKYLOSING SPONDYLITIS
     Route: 058
     Dates: start: 20110204, end: 20120413
  2. HUMIRA [Suspect]
     Indication: ARTHRITIS
  3. HUMIRA [Suspect]
     Indication: IRITIS
  4. CRESTOR [Concomitant]
     Indication: HYPERLIPIDAEMIA
     Dosage: FILM-COATED TABLET
     Route: 048
     Dates: start: 20060401, end: 20120401
  5. SULFASALAZINE [Concomitant]
     Indication: ARTHRITIS
  6. IBUMAX [Concomitant]
     Indication: ANALGESIC THERAPY
     Dosage: WHEN NEEDED 1X1-3
     Route: 048
     Dates: start: 20060101
  7. FOLIC ACID [Concomitant]
     Indication: VITAMIN SUPPLEMENTATION
     Route: 048
     Dates: start: 20060101, end: 20120401
  8. METHOTREXATE [Concomitant]
     Indication: ANKYLOSING SPONDYLITIS
     Route: 048
     Dates: start: 20061120, end: 20120418
  9. OXIKLORIN [Concomitant]
     Indication: ANKYLOSING SPONDYLITIS
     Dosage: COATED TABLET.
     Route: 048
     Dates: start: 20081013, end: 20120806
  10. METHOTREXATE [Concomitant]
     Indication: ARTHRITIS
  11. OXIKLORIN [Concomitant]
     Indication: ARTHRITIS
  12. SULFASALAZINE [Concomitant]
     Indication: ANKYLOSING SPONDYLITIS
     Dosage: GASTRO-RESISTANT TABLET
     Route: 048
     Dates: start: 19900101

REACTIONS (6)
  - PULMONARY SARCOIDOSIS [None]
  - DYSPNOEA [None]
  - ANGIOTENSIN CONVERTING ENZYME INCREASED [None]
  - CHRONIC OBSTRUCTIVE PULMONARY DISEASE [None]
  - PYREXIA [None]
  - LYSOZYME INCREASED [None]
